FAERS Safety Report 9163807 (Version 1)
Quarter: 2013Q1

REPORT INFORMATION
  Report Type: Spontaneous
  Country: US (occurrence: US)
  Receive Date: 20130314
  Receipt Date: 20130314
  Transmission Date: 20140127
  Serious: Yes (Other)
  Sender: FDA-Public Use
  Company Number: US-ASTRAZENECA-2013SE16058

PATIENT
  Age: 74 Year
  Sex: Female
  Weight: 61.2 kg

DRUGS (10)
  1. NEXIUM [Suspect]
     Indication: GASTROOESOPHAGEAL REFLUX DISEASE
     Route: 048
     Dates: start: 2010
  2. OMEPRAZOLE [Suspect]
     Indication: GASTROOESOPHAGEAL REFLUX DISEASE
     Dosage: DAILY
     Dates: start: 2010, end: 2010
  3. NOVI [Concomitant]
     Indication: FAECES HARD
     Route: 048
  4. PRESERVISION [Concomitant]
     Indication: SUPPLEMENTATION THERAPY
     Route: 048
  5. MULTIVITAMIN [Concomitant]
     Indication: SUPPLEMENTATION THERAPY
     Route: 048
  6. OMEGA FISHOIL [Concomitant]
     Indication: SUPPLEMENTATION THERAPY
     Route: 048
  7. NIACIN [Concomitant]
     Indication: BLOOD CHOLESTEROL ABNORMAL
     Route: 048
  8. CITRAZINE HYDRO [Concomitant]
     Indication: MULTIPLE ALLERGIES
     Route: 048
  9. MUCINEX [Concomitant]
     Indication: MULTIPLE ALLERGIES
     Route: 048
  10. FLUTICASONE [Concomitant]
     Indication: MULTIPLE ALLERGIES
     Route: 048

REACTIONS (6)
  - Skeletal injury [Recovered/Resolved]
  - Wrist fracture [Recovered/Resolved]
  - Thrombocytosis [Not Recovered/Not Resolved]
  - Bronchitis [Recovered/Resolved]
  - Osteoporosis [Unknown]
  - Drug ineffective [Unknown]
